FAERS Safety Report 23683204 (Version 2)
Quarter: 2024Q2

REPORT INFORMATION
  Report Type: Other
  Country: GB (occurrence: GB)
  Receive Date: 20240328
  Receipt Date: 20240425
  Transmission Date: 20240716
  Serious: Yes (Hospitalization, Other)
  Sender: FDA-Public Use
  Company Number: GB-GLENMARK PHARMACEUTICALS-2024GMK089565

PATIENT

DRUGS (156)
  1. OMEPRAZOLE [Suspect]
     Active Substance: OMEPRAZOLE
     Indication: Abdominal discomfort
     Dosage: 80 MILLIGRAM, QD (20 MG, QD)
     Route: 065
     Dates: start: 20100917
  2. OMEPRAZOLE [Suspect]
     Active Substance: OMEPRAZOLE
     Dosage: 20 MILLIGRAM, QD (20 MG, QD, BATCH AND LOT TESTED AND FOUND WITHINSPECIFICATIONS, MEDICATION ERROR,
     Route: 065
     Dates: start: 20200917
  3. OMEPRAZOLE [Suspect]
     Active Substance: OMEPRAZOLE
     Dosage: 20 MILLIGRAM, BID
     Route: 065
  4. OMEPRAZOLE [Suspect]
     Active Substance: OMEPRAZOLE
     Dosage: 80 MILLIGRAM, QD
     Route: 065
  5. OMEPRAZOLE [Suspect]
     Active Substance: OMEPRAZOLE
     Dosage: 80 MILLIGRAM, QD (20 MG, QD)
     Route: 065
     Dates: start: 20200917
  6. OMEPRAZOLE [Suspect]
     Active Substance: OMEPRAZOLE
     Dosage: 40 MILLIGRAM, QD (20 MG, QH (480 MILLIGRAM DAILY; 20 MG, 2XDAY))
     Route: 065
     Dates: start: 20100917
  7. OMEPRAZOLE [Suspect]
     Active Substance: OMEPRAZOLE
     Dosage: 20 MILLIGRAM, QD
     Route: 065
     Dates: start: 20100917
  8. OMEPRAZOLE [Suspect]
     Active Substance: OMEPRAZOLE
     Dosage: 80 MILLIGRAM, QD (20 MG, QD)
     Route: 065
     Dates: start: 20100917
  9. OMEPRAZOLE [Suspect]
     Active Substance: OMEPRAZOLE
     Dosage: 20 MILLIGRAM, BID
     Route: 065
  10. OMEPRAZOLE [Suspect]
     Active Substance: OMEPRAZOLE
     Dosage: 20 MILLIGRAM, QD (20 MG, QH (480 MILLIGRAM DAILY; 20 MG, 2XDAY))
     Route: 065
  11. OMEPRAZOLE [Suspect]
     Active Substance: OMEPRAZOLE
     Dosage: 20 MILLIGRAM, QD (20 MG, QH (480 MILLIGRAM DAILY; 20 MG, 2XDAY))
     Route: 065
  12. OMEPRAZOLE [Suspect]
     Active Substance: OMEPRAZOLE
     Dosage: 20 MILLIGRAM, BID
     Route: 065
  13. OMEPRAZOLE [Suspect]
     Active Substance: OMEPRAZOLE
     Dosage: 20 MILLIGRAM, BID
     Route: 065
  14. AMINOPHYLLINE [Suspect]
     Active Substance: AMINOPHYLLINE
     Indication: Product used for unknown indication
     Dosage: 400 MILLIGRAM, QD
     Route: 065
  15. AMINOPHYLLINE [Suspect]
     Active Substance: AMINOPHYLLINE
     Dosage: 400 MILLIGRAM, QD
     Route: 065
     Dates: start: 20100917
  16. AMINOPHYLLINE [Suspect]
     Active Substance: AMINOPHYLLINE
     Dosage: 400 MILLIGRAM, QD
     Route: 065
     Dates: start: 20200917
  17. AMOXICILLIN [Suspect]
     Active Substance: AMOXICILLIN
     Indication: Abdominal discomfort
     Dosage: 25 MILLIGRAM (25 MG (125 MG/ 5 ML (FROM 04 SEP 2021)))
     Route: 065
     Dates: start: 20210904
  18. BIFIDOBACTERIUM LONGUM [Suspect]
     Active Substance: BIFIDOBACTERIUM LONGUM
     Indication: Abdominal discomfort
     Dosage: 750 MILLIGRAM
     Route: 065
  19. BIFIDOBACTERIUM LONGUM [Suspect]
     Active Substance: BIFIDOBACTERIUM LONGUM
     Indication: Depression
     Dosage: UNK
     Route: 065
  20. BIFIDOBACTERIUM LONGUM [Suspect]
     Active Substance: BIFIDOBACTERIUM LONGUM
     Dosage: 750 MILLIGRAM
     Route: 065
  21. BIFIDOBACTERIUM LONGUM [Suspect]
     Active Substance: BIFIDOBACTERIUM LONGUM
     Dosage: 750 MILLIGRAM
     Route: 065
  22. BIFIDOBACTERIUM LONGUM [Suspect]
     Active Substance: BIFIDOBACTERIUM LONGUM
     Dosage: 750 MILLIGRAM
     Route: 065
  23. BIFIDOBACTERIUM LONGUM [Suspect]
     Active Substance: BIFIDOBACTERIUM LONGUM
     Dosage: UNK
     Route: 065
  24. CARBAMAZEPINE [Suspect]
     Active Substance: CARBAMAZEPINE
     Indication: Product used for unknown indication
     Dosage: 1000 MILLIGRAM, QD
     Route: 065
     Dates: start: 20100917
  25. CARBAMAZEPINE [Suspect]
     Active Substance: CARBAMAZEPINE
     Dosage: 750 MILLIGRAM, QD
     Route: 065
     Dates: start: 20100917
  26. CARBAMAZEPINE [Suspect]
     Active Substance: CARBAMAZEPINE
     Dosage: 750 MILLIGRAM, QD
     Route: 065
  27. CARBAMAZEPINE [Suspect]
     Active Substance: CARBAMAZEPINE
     Dosage: 750 MILLIGRAM, QD
     Route: 065
     Dates: start: 20200917
  28. CARBAMAZEPINE [Suspect]
     Active Substance: CARBAMAZEPINE
     Dosage: 750 MILLIGRAM, QD
     Route: 065
     Dates: start: 20100917
  29. CARBAMAZEPINE [Suspect]
     Active Substance: CARBAMAZEPINE
     Dosage: 750 MILLIGRAM, QD
     Route: 065
     Dates: start: 20210917
  30. CARBOCYSTEINE [Suspect]
     Active Substance: CARBOCYSTEINE
     Indication: Rheumatoid arthritis
     Dosage: 750 MILLIGRAM, QD
     Route: 065
     Dates: start: 20210917
  31. CARBOCYSTEINE [Suspect]
     Active Substance: CARBOCYSTEINE
     Dosage: 750 MILLIGRAM, QD
     Route: 065
     Dates: start: 20100917
  32. CARBOCYSTEINE [Suspect]
     Active Substance: CARBOCYSTEINE
     Dosage: 750 MILLIGRAM, QD
     Route: 065
     Dates: start: 20120917
  33. CARBOCYSTEINE [Suspect]
     Active Substance: CARBOCYSTEINE
     Dosage: 750 MILLIGRAM, QD
     Route: 065
     Dates: start: 20120917
  34. CARBOCYSTEINE [Suspect]
     Active Substance: CARBOCYSTEINE
     Dosage: 750 MILLIGRAM, QD
     Route: 065
  35. CARBOCYSTEINE [Suspect]
     Active Substance: CARBOCYSTEINE
     Dosage: 750 MILLIGRAM, QD
     Route: 065
     Dates: start: 20200917
  36. CARBOCYSTEINE [Suspect]
     Active Substance: CARBOCYSTEINE
     Dosage: UNK
     Route: 065
  37. CHARCOAL ACTIVATED [Suspect]
     Active Substance: ACTIVATED CHARCOAL
     Indication: Product used for unknown indication
     Dosage: 750 MILLIGRAM, QD
     Route: 065
  38. CHARCOAL ACTIVATED [Suspect]
     Active Substance: ACTIVATED CHARCOAL
     Dosage: 750 MILLIGRAM, QD
     Route: 065
  39. CHARCOAL ACTIVATED [Suspect]
     Active Substance: ACTIVATED CHARCOAL
     Dosage: 750 MILLIGRAM, QD
     Route: 065
  40. CHARCOAL ACTIVATED [Suspect]
     Active Substance: ACTIVATED CHARCOAL
     Dosage: 750 MILLIGRAM, QD
     Route: 065
  41. CHARCOAL ACTIVATED [Suspect]
     Active Substance: ACTIVATED CHARCOAL
     Dosage: 750 MILLIGRAM, QD
     Route: 065
  42. CHARCOAL ACTIVATED [Suspect]
     Active Substance: ACTIVATED CHARCOAL
     Dosage: 750 MILLIGRAM, QD
     Route: 065
  43. CHARCOAL ACTIVATED [Suspect]
     Active Substance: ACTIVATED CHARCOAL
     Dosage: 750 MILLIGRAM, QD
     Route: 065
  44. CIPROFLOXACIN HYDROCHLORIDE [Suspect]
     Active Substance: CIPROFLOXACIN HYDROCHLORIDE
     Indication: Depression
     Dosage: 1000 MILLIGRAM, QD
     Route: 065
     Dates: start: 20200917
  45. CIPROFLOXACIN HYDROCHLORIDE [Suspect]
     Active Substance: CIPROFLOXACIN HYDROCHLORIDE
     Indication: Rheumatoid arthritis
     Dosage: 1000 MILLIGRAM, QD
     Route: 065
     Dates: start: 20100917
  46. CIPROFLOXACIN HYDROCHLORIDE [Suspect]
     Active Substance: CIPROFLOXACIN HYDROCHLORIDE
     Indication: Abdominal discomfort
     Dosage: UNK
     Route: 065
  47. ENBREL [Suspect]
     Active Substance: ETANERCEPT
     Indication: Rheumatoid arthritis
     Dosage: 50 MILLIGRAM, QW
     Route: 065
     Dates: start: 20210917
  48. ENBREL [Suspect]
     Active Substance: ETANERCEPT
     Dosage: 50 MILLIGRAM, QW
     Route: 058
     Dates: start: 20100917
  49. ENBREL [Suspect]
     Active Substance: ETANERCEPT
     Dosage: UNK
     Route: 065
  50. ENBREL [Suspect]
     Active Substance: ETANERCEPT
     Dosage: UNK
     Route: 065
  51. GUANIDINE [Suspect]
     Active Substance: GUANIDINE
     Indication: Abdominal discomfort
     Dosage: 750 MILLIGRAM, QD
     Route: 065
  52. GUANIDINE [Suspect]
     Active Substance: GUANIDINE
     Indication: Depression
     Dosage: 750 MILLIGRAM, QD (1,3-DIPHENYLGUANIDINE)
     Route: 065
  53. GUANIDINE [Suspect]
     Active Substance: GUANIDINE
     Dosage: UNK, QD
     Route: 065
  54. GUANIDINE [Suspect]
     Active Substance: GUANIDINE
     Dosage: UNK
     Route: 065
  55. GUANIDINE [Suspect]
     Active Substance: GUANIDINE
     Dosage: (1,3-DIPHENYLGUANIDINE)
     Route: 065
  56. IRBESARTAN [Suspect]
     Active Substance: IRBESARTAN
     Indication: Abdominal discomfort
     Dosage: 150 GRAM, QD
     Route: 065
     Dates: start: 20100917
  57. IRBESARTAN [Suspect]
     Active Substance: IRBESARTAN
     Dosage: 150 GRAM, QD
     Route: 065
     Dates: start: 20100917
  58. IRBESARTAN [Suspect]
     Active Substance: IRBESARTAN
     Dosage: 150 GRAM, QD
     Route: 065
     Dates: start: 20100912
  59. IRBESARTAN [Suspect]
     Active Substance: IRBESARTAN
     Dosage: 150 GRAM, QD
     Route: 065
     Dates: start: 20100917
  60. LACTOBACILLUS RHAMNOSUS [Suspect]
     Active Substance: LACTOBACILLUS RHAMNOSUS
     Indication: Abdominal discomfort
     Dosage: UNK
     Route: 065
  61. LACTOBACILLUS RHAMNOSUS [Suspect]
     Active Substance: LACTOBACILLUS RHAMNOSUS
     Indication: Depression
     Dosage: 750 MILLIGRAM
     Route: 065
  62. LACTOBACILLUS RHAMNOSUS [Suspect]
     Active Substance: LACTOBACILLUS RHAMNOSUS
     Dosage: 400 MILLIGRAM, QD
     Route: 065
  63. METHOTREXATE [Suspect]
     Active Substance: METHOTREXATE
     Indication: Rheumatoid arthritis
     Dosage: 18 MILLIGRAM, QW (AT 17.5, WEEKLY)
     Route: 065
     Dates: start: 20100917
  64. METHOTREXATE [Suspect]
     Active Substance: METHOTREXATE
     Dosage: UNK, QW
     Route: 065
  65. METHOTREXATE [Suspect]
     Active Substance: METHOTREXATE
     Dosage: 17.5 MILLIGRAM, QW
     Route: 065
     Dates: start: 20100917
  66. METHOTREXATE [Suspect]
     Active Substance: METHOTREXATE
     Dosage: 18 MILLIGRAM, QW
     Route: 065
  67. METHOTREXATE [Suspect]
     Active Substance: METHOTREXATE
     Dosage: 17.5 MILLIGRAM, QW
     Route: 065
     Dates: start: 20100917
  68. METHOTREXATE [Suspect]
     Active Substance: METHOTREXATE
     Dosage: UNK, QW
     Route: 065
  69. PHYLLOCONTIN [Suspect]
     Active Substance: AMINOPHYLLINE
     Indication: Product used for unknown indication
     Dosage: 400 MILLIGRAM, QD
     Route: 065
  70. PHYLLOCONTIN [Suspect]
     Active Substance: AMINOPHYLLINE
     Dosage: 400 MILLIGRAM, QD
     Route: 065
     Dates: start: 20200917
  71. PHYLLOCONTIN [Suspect]
     Active Substance: AMINOPHYLLINE
     Dosage: 400 MILLIGRAM, QD
     Route: 065
     Dates: start: 20100917
  72. SULFAGUANIDINE [Suspect]
     Active Substance: SULFAGUANIDINE
     Indication: Abdominal discomfort
     Dosage: 750 MILLIGRAM, QD
     Route: 065
  73. SULFAGUANIDINE [Suspect]
     Active Substance: SULFAGUANIDINE
     Dosage: 750 MILLIGRAM, QD
     Route: 065
  74. SULFAGUANIDINE [Suspect]
     Active Substance: SULFAGUANIDINE
     Dosage: 750 MILLIGRAM, QD
     Route: 065
  75. SULFAGUANIDINE [Suspect]
     Active Substance: SULFAGUANIDINE
     Dosage: UNK
     Route: 065
  76. SULFAGUANIDINE [Suspect]
     Active Substance: SULFAGUANIDINE
     Dosage: 750 MILLIGRAM, QD
     Route: 065
  77. SULFAGUANIDINE [Suspect]
     Active Substance: SULFAGUANIDINE
     Dosage: 750 MILLIGRAM, QD
     Route: 065
  78. SULFAGUANIDINE [Suspect]
     Active Substance: SULFAGUANIDINE
     Dosage: 750 MILLIGRAM, QD
     Route: 065
  79. SULFAGUANIDINE [Suspect]
     Active Substance: SULFAGUANIDINE
     Dosage: 750 MILLIGRAM, QD
     Route: 065
  80. THEOPHYLLINE [Suspect]
     Active Substance: THEOPHYLLINE
     Indication: Abdominal discomfort
     Dosage: UNK
     Route: 065
  81. THEOPHYLLINE [Suspect]
     Active Substance: THEOPHYLLINE
     Indication: Depression
     Dosage: 750 MILLIGRAM, QD
     Route: 065
  82. THEOPHYLLINE [Suspect]
     Active Substance: THEOPHYLLINE
     Dosage: 750 MILLIGRAM, QD
     Route: 065
  83. VENLAFAXINE [Suspect]
     Active Substance: VENLAFAXINE HYDROCHLORIDE
     Indication: Depression
     Dosage: 225 MILLIGRAM, QD
     Route: 065
  84. VENLAFAXINE [Suspect]
     Active Substance: VENLAFAXINE HYDROCHLORIDE
     Indication: Rheumatoid arthritis
     Dosage: UNK
     Route: 065
  85. VENLAFAXINE HYDROCHLORIDE [Suspect]
     Active Substance: VENLAFAXINE HYDROCHLORIDE
     Indication: Rheumatoid arthritis
     Dosage: 225 MILLIGRAM, QD (PROLONGED RELEASE,225 MG, DAILY)
     Route: 065
  86. VENLAFAXINE HYDROCHLORIDE [Suspect]
     Active Substance: VENLAFAXINE HYDROCHLORIDE
     Indication: Depression
     Dosage: 225 MILLIGRAM, QD (PROLONGED RELEASE,225 MG, DAILY)
     Route: 065
  87. VENLAFAXINE HYDROCHLORIDE [Suspect]
     Active Substance: VENLAFAXINE HYDROCHLORIDE
     Dosage: 225 MILLIGRAM, QD (PROLONGED RELEASE,225 MG, DAILY)
     Route: 065
  88. VENLAFAXINE HYDROCHLORIDE [Suspect]
     Active Substance: VENLAFAXINE HYDROCHLORIDE
     Indication: Rheumatoid arthritis
     Dosage: 225 MILLIGRAM, QD (XL, PROLONGED RELEASE)
     Route: 065
  89. VENLAFAXINE HYDROCHLORIDE [Suspect]
     Active Substance: VENLAFAXINE HYDROCHLORIDE
     Indication: Depression
     Dosage: 225 MILLIGRAM, QD (XL, PROLONGED RELEASE)
     Route: 065
  90. VENLAFAXINE HYDROCHLORIDE [Suspect]
     Active Substance: VENLAFAXINE HYDROCHLORIDE
     Dosage: 225 MILLIGRAM, QD (XL, PROLONGED RELEASE)
     Route: 065
  91. ZINC [Suspect]
     Active Substance: PYRITHIONE ZINC\ZINC\ZINC CHLORIDE
     Indication: Abdominal discomfort
     Dosage: 750 MILLIGRAM (DIETHYLDITHIOCARBAMATE)
     Route: 065
  92. ZINC [Suspect]
     Active Substance: PYRITHIONE ZINC\ZINC\ZINC CHLORIDE
     Indication: Depression
     Dosage: 750 MILLIGRAM (DIETHYLDITHIOCARBAMATE)
     Route: 065
  93. ZINC [Suspect]
     Active Substance: PYRITHIONE ZINC\ZINC\ZINC CHLORIDE
     Dosage: 750 MILLIGRAM, QD (DIETHYLDITHIOCARBAMATE)
     Route: 065
  94. VENLAFAXINE [Suspect]
     Active Substance: VENLAFAXINE HYDROCHLORIDE
     Indication: Depression
     Dosage: 22 MILLIGRAM, QD
     Route: 065
  95. VENLAFAXINE [Suspect]
     Active Substance: VENLAFAXINE HYDROCHLORIDE
     Indication: Rheumatoid arthritis
     Dosage: UNK
     Route: 065
  96. BENDROFLUMETHIAZIDE [Concomitant]
     Active Substance: BENDROFLUMETHIAZIDE
     Indication: Depression
     Dosage: UNK
     Route: 065
  97. BENDROFLUMETHIAZIDE [Concomitant]
     Active Substance: BENDROFLUMETHIAZIDE
     Indication: Pituitary tumour
     Dosage: 750 MILLIGRAM
     Route: 065
  98. BENDROFLUMETHIAZIDE [Concomitant]
     Active Substance: BENDROFLUMETHIAZIDE
     Dosage: UNK
     Route: 065
  99. BENDROFLUMETHIAZIDE [Concomitant]
     Active Substance: BENDROFLUMETHIAZIDE
     Dosage: UNK
     Route: 065
  100. BENDROFLUMETHIAZIDE [Concomitant]
     Active Substance: BENDROFLUMETHIAZIDE
     Dosage: UNK
     Route: 065
  101. BENDROFLUMETHIAZIDE [Concomitant]
     Active Substance: BENDROFLUMETHIAZIDE
     Dosage: UNK
     Route: 065
  102. BENDROFLUMETHIAZIDE [Concomitant]
     Active Substance: BENDROFLUMETHIAZIDE
     Dosage: UNK
     Route: 065
  103. BENDROFLUMETHIAZIDE [Concomitant]
     Active Substance: BENDROFLUMETHIAZIDE
     Dosage: UNK
     Route: 065
  104. BENDROFLUMETHIAZIDE [Concomitant]
     Active Substance: BENDROFLUMETHIAZIDE
     Dosage: UNK
     Route: 065
  105. CABERGOLINE [Concomitant]
     Active Substance: CABERGOLINE
     Indication: Empty sella syndrome
     Dosage: UNK
     Route: 065
  106. CABERGOLINE [Concomitant]
     Active Substance: CABERGOLINE
     Indication: Pituitary tumour
     Dosage: UNK
     Route: 065
  107. CABERGOLINE [Concomitant]
     Active Substance: CABERGOLINE
     Indication: Pituitary tumour
     Dosage: UNK
     Route: 065
  108. CABERGOLINE [Concomitant]
     Active Substance: CABERGOLINE
     Dosage: UNK
     Route: 065
  109. CABERGOLINE [Concomitant]
     Active Substance: CABERGOLINE
     Dosage: UNK
     Route: 065
  110. CABERGOLINE [Concomitant]
     Active Substance: CABERGOLINE
     Dosage: UNK
     Route: 065
  111. CABERGOLINE [Concomitant]
     Active Substance: CABERGOLINE
     Dosage: UNK
     Route: 065
  112. CABERGOLINE [Concomitant]
     Active Substance: CABERGOLINE
     Dosage: UNK
     Route: 065
  113. CABERGOLINE [Concomitant]
     Active Substance: CABERGOLINE
     Dosage: UNK
     Route: 065
  114. CABERGOLINE [Concomitant]
     Active Substance: CABERGOLINE
     Dosage: UNK
     Route: 065
  115. CABERGOLINE [Concomitant]
     Active Substance: CABERGOLINE
     Dosage: UNK
     Route: 065
  116. CHARCOAL ACTIVATED [Concomitant]
     Active Substance: ACTIVATED CHARCOAL
     Indication: Product used for unknown indication
     Dosage: 750 MILLIGRAM
     Route: 065
  117. CHARCOAL ACTIVATED [Concomitant]
     Active Substance: ACTIVATED CHARCOAL
     Dosage: 750 MILLIGRAM, QD
     Route: 065
  118. CHARCOAL ACTIVATED [Concomitant]
     Active Substance: ACTIVATED CHARCOAL
     Dosage: 750 MILLIGRAM, QD
     Route: 065
  119. CHARCOAL ACTIVATED [Concomitant]
     Active Substance: ACTIVATED CHARCOAL
     Dosage: 750 MILLIGRAM, QD
     Route: 065
  120. CHARCOAL ACTIVATED [Concomitant]
     Active Substance: ACTIVATED CHARCOAL
     Dosage: UNK
     Route: 065
  121. EZETIMIBE [Concomitant]
     Active Substance: EZETIMIBE
     Indication: Product used for unknown indication
     Dosage: UNK
     Route: 065
  122. EZETIMIBE [Concomitant]
     Active Substance: EZETIMIBE
     Dosage: 50 MILLIGRAM, QW (MYCLIC PEN)
     Route: 065
     Dates: start: 20100917
  123. EZETIMIBE [Concomitant]
     Active Substance: EZETIMIBE
     Dosage: UNK
     Route: 065
  124. EZETIMIBE [Concomitant]
     Active Substance: EZETIMIBE
     Dosage: 50 MILLIGRAM, QW (MYCLIC PEN)
     Route: 065
     Dates: start: 20100917
  125. EZETIMIBE [Concomitant]
     Active Substance: EZETIMIBE
     Dosage: UNK
     Route: 065
  126. EZETIMIBE [Concomitant]
     Active Substance: EZETIMIBE
     Dosage: UNK
     Route: 065
  127. EZETIMIBE [Concomitant]
     Active Substance: EZETIMIBE
     Dosage: UNK
     Route: 065
  128. FOLIC ACID [Concomitant]
     Active Substance: FOLIC ACID
     Indication: Product used for unknown indication
     Dosage: UNK
     Route: 065
  129. FOLIC ACID [Concomitant]
     Active Substance: FOLIC ACID
     Dosage: UNK
     Route: 065
  130. FOLIC ACID [Concomitant]
     Active Substance: FOLIC ACID
     Dosage: UNK
     Route: 065
  131. FOLIC ACID [Concomitant]
     Active Substance: FOLIC ACID
     Dosage: UNK
     Route: 065
  132. FOLIC ACID [Concomitant]
     Active Substance: FOLIC ACID
     Dosage: UNK
     Route: 065
  133. FOLIC ACID [Concomitant]
     Active Substance: FOLIC ACID
     Dosage: UNK
     Route: 065
  134. FOLIC ACID [Concomitant]
     Active Substance: FOLIC ACID
     Dosage: UNK
     Route: 065
  135. FOLIC ACID [Concomitant]
     Active Substance: FOLIC ACID
     Dosage: UNK
     Route: 065
  136. ORUVAIL [Concomitant]
     Active Substance: KETOPROFEN
     Indication: Empty sella syndrome
     Dosage: UNK
     Route: 065
  137. ORUVAIL [Concomitant]
     Active Substance: KETOPROFEN
     Dosage: UNK
     Route: 065
  138. ORUVAIL [Concomitant]
     Active Substance: KETOPROFEN
     Dosage: UNK
     Route: 065
  139. ORUVAIL [Concomitant]
     Active Substance: KETOPROFEN
     Dosage: UNK
     Route: 065
  140. ORUVAIL [Concomitant]
     Active Substance: KETOPROFEN
     Dosage: UNK
     Route: 065
  141. ORUVAIL [Concomitant]
     Active Substance: KETOPROFEN
     Dosage: UNK
     Route: 065
  142. ORUVAIL [Concomitant]
     Active Substance: KETOPROFEN
     Dosage: UNK
     Route: 065
  143. ORUVAIL [Concomitant]
     Active Substance: KETOPROFEN
     Dosage: UNK
     Route: 065
  144. ORUVAIL [Concomitant]
     Active Substance: KETOPROFEN
     Dosage: UNK
     Route: 065
  145. ORUVAIL [Concomitant]
     Active Substance: KETOPROFEN
     Dosage: UNK
     Route: 065
  146. ORUVAIL [Concomitant]
     Active Substance: KETOPROFEN
     Dosage: UNK
     Route: 065
  147. THEOPHYLLINE [Concomitant]
     Active Substance: THEOPHYLLINE
     Indication: Abdominal discomfort
     Dosage: 750 MILLIGRAM, QD
     Route: 065
  148. THEOPHYLLINE [Concomitant]
     Active Substance: THEOPHYLLINE
     Indication: Depression
     Dosage: UNK
     Route: 065
  149. CETIRIZINE [Concomitant]
     Active Substance: CETIRIZINE HYDROCHLORIDE
     Indication: Abdominal discomfort
     Dosage: UNK
     Route: 065
  150. CETIRIZINE [Concomitant]
     Active Substance: CETIRIZINE HYDROCHLORIDE
     Dosage: UNK
     Route: 065
  151. CETIRIZINE [Concomitant]
     Active Substance: CETIRIZINE HYDROCHLORIDE
     Dosage: UNK
     Route: 065
  152. CETIRIZINE [Concomitant]
     Active Substance: CETIRIZINE HYDROCHLORIDE
     Dosage: UNK
     Route: 065
  153. DOXYCYCLINE [Concomitant]
     Active Substance: DOXYCYCLINE
     Indication: Pulmonary pain
     Dosage: UNK
     Route: 065
  154. LEVOTHYROXINE [Concomitant]
     Active Substance: LEVOTHYROXINE\LEVOTHYROXINE SODIUM
     Indication: Abdominal discomfort
     Dosage: UNK
     Route: 065
  155. LEVOTHYROXINE [Concomitant]
     Active Substance: LEVOTHYROXINE\LEVOTHYROXINE SODIUM
     Dosage: UNK
     Route: 065
  156. LEVOTHYROXINE [Concomitant]
     Active Substance: LEVOTHYROXINE\LEVOTHYROXINE SODIUM
     Dosage: UNK
     Route: 065

REACTIONS (13)
  - Amyloid arthropathy [Unknown]
  - Abdominal discomfort [Unknown]
  - Lower respiratory tract infection [Not Recovered/Not Resolved]
  - Arthropathy [Unknown]
  - Knee arthroplasty [Unknown]
  - Obesity [Unknown]
  - Pulmonary pain [Unknown]
  - Rash [Not Recovered/Not Resolved]
  - Intentional product misuse [Unknown]
  - Overdose [Unknown]
  - Product dose omission issue [Unknown]
  - Off label use [Unknown]
  - Drug abuse [Unknown]

NARRATIVE: CASE EVENT DATE: 20201001
